APPROVED DRUG PRODUCT: SORBITOL-MANNITOL IN PLASTIC CONTAINER
Active Ingredient: MANNITOL; SORBITOL
Strength: 540MG/100ML;2.7GM/100ML
Dosage Form/Route: SOLUTION;IRRIGATION
Application: N018316 | Product #001
Applicant: OTSUKA ICU MEDICAL LLC
Approved: Approved Prior to Jan 1, 1982 | RLD: Yes | RS: Yes | Type: RX